FAERS Safety Report 4741406-0 (Version None)
Quarter: 2005Q3

REPORT INFORMATION
  Report Type: 
  Country: None (occurrence: None)
  Receive Date: 20050810
  Receipt Date: 20050729
  Transmission Date: 20060218
  Serious: Yes (Death)
  Sender: FDA-Public Use
  Company Number: JP-BRISTOL-MYERS SQUIBB COMPANY-13057088

PATIENT
  Age: 25 Year
  Sex: Female

DRUGS (3)
  1. RESLIN [Suspect]
     Route: 048
  2. MIGSIS [Suspect]
     Route: 048
  3. HALCION [Suspect]
     Route: 048

REACTIONS (2)
  - COMPLETED SUICIDE [None]
  - DRUG TOXICITY [None]
